FAERS Safety Report 24408344 (Version 2)
Quarter: 2025Q4

REPORT INFORMATION
  Report Type: Spontaneous
  Country: JP (occurrence: JP)
  Receive Date: 20241007
  Receipt Date: 20251029
  Transmission Date: 20260117
  Serious: Yes (Hospitalization, Other)
  Sender: GLAXOSMITHKLINE
  Company Number: JP-GLAXOSMITHKLINE-JP2024JPN120619

PATIENT
  Age: 58 Year
  Sex: Male

DRUGS (2)
  1. VALTREX [Suspect]
     Active Substance: VALACYCLOVIR HYDROCHLORIDE
     Indication: Herpes zoster
     Dosage: UNK, ONE TABLET AFTER RETURNING HOME, ONE BEFORE DINNER, AND ANOTHER THE FOLLOWING DAY AFTER LUNCH
  2. ZOVIRAX [Suspect]
     Active Substance: ACYCLOVIR
     Dosage: UNK

REACTIONS (20)
  - Toxic encephalopathy [Unknown]
  - Neurotoxicity [Unknown]
  - Shock haemorrhagic [Unknown]
  - Intentional self-injury [Unknown]
  - Altered state of consciousness [Recovered/Resolved]
  - Ascites [Unknown]
  - Lactic acidosis [Unknown]
  - Muscle rupture [Unknown]
  - Neurosis [Recovered/Resolved]
  - Colon injury [Unknown]
  - Malaise [Unknown]
  - Agitation [Unknown]
  - Confusional state [Unknown]
  - Stupor [Unknown]
  - Pallor [Unknown]
  - Peritoneal disorder [Unknown]
  - Anaemia [Unknown]
  - Stab wound [Unknown]
  - Accidental overdose [Unknown]
  - Inappropriate schedule of product administration [Unknown]
